FAERS Safety Report 9091224 (Version 1)
Quarter: 2013Q1

REPORT INFORMATION
  Report Type: Spontaneous
  Country: US (occurrence: US)
  Receive Date: 20130131
  Receipt Date: 20130131
  Transmission Date: 20140127
  Serious: Yes (Other)
  Sender: FDA-Public Use
  Company Number: US-B.I. PHARMACEUTICALS,INC./RIDGEFIELD-2013-BI-02013BP

PATIENT
  Sex: Female

DRUGS (3)
  1. MICARDIS [Suspect]
     Indication: HYPERTENSION
     Dosage: 40 MG
     Route: 048
  2. NEXIUM [Concomitant]
     Indication: GASTROOESOPHAGEAL REFLUX DISEASE
  3. DIAZEPAM [Concomitant]
     Indication: ANXIETY
     Route: 048

REACTIONS (12)
  - Neoplasm malignant [Not Recovered/Not Resolved]
  - Back pain [Not Recovered/Not Resolved]
  - Breast mass [Not Recovered/Not Resolved]
  - Benign breast neoplasm [Recovered/Resolved]
  - Benign breast neoplasm [Recovered/Resolved]
  - Nipple pain [Recovered/Resolved]
  - Nipple pain [Not Recovered/Not Resolved]
  - Road traffic accident [Recovered/Resolved]
  - Lumbar vertebral fracture [Not Recovered/Not Resolved]
  - Mass [Not Recovered/Not Resolved]
  - Haemorrhage [Recovered/Resolved]
  - Back pain [Not Recovered/Not Resolved]
